FAERS Safety Report 15260295 (Version 3)
Quarter: 2018Q4

REPORT INFORMATION
  Report Type: Spontaneous
  Country: US (occurrence: US)
  Receive Date: 20180809
  Receipt Date: 20181002
  Transmission Date: 20190204
  Serious: Yes (Other)
  Sender: FDA-Public Use
  Company Number: PHEH2018US032550

PATIENT
  Age: 52 Year
  Sex: Female
  Weight: 87.54 kg

DRUGS (1)
  1. GILENYA [Suspect]
     Active Substance: FINGOLIMOD HYDROCHLORIDE
     Indication: RELAPSING-REMITTING MULTIPLE SCLEROSIS
     Dosage: 0.5 MG, QD
     Route: 048
     Dates: start: 20111229, end: 20180713

REACTIONS (7)
  - Pleural effusion [Unknown]
  - Disseminated cryptococcosis [Not Recovered/Not Resolved]
  - Nausea [Unknown]
  - Pneumonia cryptococcal [Unknown]
  - Vomiting [Unknown]
  - Cryptococcal cutaneous infection [Unknown]
  - Pyrexia [Unknown]

NARRATIVE: CASE EVENT DATE: 201806
